FAERS Safety Report 5139462-3 (Version None)
Quarter: 2006Q4

REPORT INFORMATION
  Report Type: 
  Country: None (occurrence: None)
  Receive Date: 20061024
  Receipt Date: 20061011
  Transmission Date: 20070319
  Serious: Yes (Other)
  Sender: FDA-Public Use
  Company Number: 2006102833

PATIENT
  Age: 78 Year
  Sex: Male
  Weight: 64.8644 kg

DRUGS (5)
  1. VIAGRA [Suspect]
     Indication: POST PROCEDURAL COMPLICATION
     Dosage: 100 MG (100 MG, 1 IN 1 AS NECESSARY), ORAL
     Route: 048
  2. ALL OTHER THERAPEUTIC PRODUCTS (ALL OTHER THERAPEUTIC PRODUCTS) [Concomitant]
  3. FOLIC ACID [Concomitant]
  4. NAPROXEN [Concomitant]
  5. MULTIVITAMIN [Concomitant]

REACTIONS (3)
  - BLOOD CHOLESTEROL INCREASED [None]
  - OPTIC ISCHAEMIC NEUROPATHY [None]
  - VITAMIN B12 INCREASED [None]
